FAERS Safety Report 23955381 (Version 1)
Quarter: 2024Q2

REPORT INFORMATION
  Report Type: Report from Study
  Country: US (occurrence: US)
  Receive Date: 20240610
  Receipt Date: 20240610
  Transmission Date: 20240716
  Serious: Yes (Hospitalization)
  Sender: FDA-Public Use
  Company Number: US-TAKEDA-2024TUS017919

PATIENT
  Age: 70 Year
  Sex: Male

DRUGS (2)
  1. MARIBAVIR [Suspect]
     Active Substance: MARIBAVIR
     Indication: Liver transplant
     Dosage: 2 DOSAGE FORM, BID
     Route: 048
     Dates: start: 20230519
  2. MARIBAVIR [Suspect]
     Active Substance: MARIBAVIR
     Indication: Cytomegalovirus hepatitis
     Dosage: 400 MILLIGRAM, BID
     Route: 048

REACTIONS (2)
  - Prostatectomy [Unknown]
  - Pain [Unknown]

NARRATIVE: CASE EVENT DATE: 20240501
